FAERS Safety Report 4742133-6 (Version None)
Quarter: 2005Q3

REPORT INFORMATION
  Report Type: 
  Country: None (occurrence: None)
  Receive Date: 20050808
  Receipt Date: 20050725
  Transmission Date: 20060218
  Serious: Yes (Other)
  Sender: FDA-Public Use
  Company Number: 2005059069

PATIENT
  Age: 81 Year
  Sex: Female

DRUGS (1)
  1. BEXTRA [Suspect]
     Indication: PULMONARY OEDEMA
     Dosage: (1 D), ORAL
     Route: 048
     Dates: start: 20050301

REACTIONS (1)
  - HYPERSENSITIVITY [None]
